FAERS Safety Report 17913838 (Version 1)
Quarter: 2020Q2

REPORT INFORMATION
  Report Type: Spontaneous
  Country: US (occurrence: US)
  Receive Date: 20200618
  Receipt Date: 20200618
  Transmission Date: 20200714
  Serious: Yes (Death, Other)
  Sender: FDA-Public Use
  Company Number: US-PFM-2020-14660

PATIENT
  Age: 7 Month
  Sex: Male

DRUGS (5)
  1. PROPRANOLOL HYDROCHLORIDE. [Suspect]
     Active Substance: PROPRANOLOL HYDROCHLORIDE
     Indication: AUTONOMIC NERVOUS SYSTEM IMBALANCE
     Route: 065
  2. VIGABATRIN. [Suspect]
     Active Substance: VIGABATRIN
     Indication: INFANTILE SPASMS
     Route: 065
  3. ACTH [Suspect]
     Active Substance: CORTICOTROPIN
     Indication: INFANTILE SPASMS
     Route: 065
  4. CLONIDINE. [Suspect]
     Active Substance: CLONIDINE
     Indication: AUTONOMIC NERVOUS SYSTEM IMBALANCE
     Route: 065
  5. BROMOCRIPTINE [Suspect]
     Active Substance: BROMOCRIPTINE
     Indication: AUTONOMIC NERVOUS SYSTEM IMBALANCE
     Route: 065

REACTIONS (6)
  - Product administered to patient of inappropriate age [Unknown]
  - Off label use [Unknown]
  - Disease progression [Fatal]
  - Respiratory tract infection [Unknown]
  - Product use in unapproved indication [Unknown]
  - Intramyelinic oedema [Fatal]
